FAERS Safety Report 7373994-2 (Version None)
Quarter: 2011Q1

REPORT INFORMATION
  Report Type: 
  Country: None (occurrence: None)
  Receive Date: 20110325
  Receipt Date: 20110323
  Transmission Date: 20110831
  Serious: No
  Sender: FDA-Public Use
  Company Number: US-PFIZER INC-2011065452

PATIENT
  Sex: Male
  Weight: 90.703 kg

DRUGS (3)
  1. ADVIL CONGESTION RELIEF [Suspect]
     Indication: INFLUENZA
  2. ADVIL CONGESTION RELIEF [Suspect]
     Indication: SINUS CONGESTION
  3. ADVIL CONGESTION RELIEF [Suspect]
     Indication: NASOPHARYNGITIS
     Dosage: 20 MG, 2X/DAY
     Route: 048
     Dates: start: 20110301, end: 20110301

REACTIONS (1)
  - DRUG INEFFECTIVE [None]
